FAERS Safety Report 7131377-4 (Version None)
Quarter: 2010Q4

REPORT INFORMATION
  Report Type: 
  Country: None (occurrence: None)
  Receive Date: 20101201
  Receipt Date: 20101121
  Transmission Date: 20110411
  Serious: Yes (Other)
  Sender: FDA-Public Use
  Company Number: US-PFIZER INC-2010115032

PATIENT
  Sex: Male
  Weight: 86 kg

DRUGS (13)
  1. CHANTIX [Suspect]
     Indication: SMOKING CESSATION THERAPY
     Dosage: 0.5 MG, DAILY
     Route: 048
     Dates: start: 20100901
  2. CHANTIX [Suspect]
     Dosage: 0.5 MG, 2X/DAY
     Route: 048
     Dates: start: 20100904
  3. CHANTIX [Suspect]
     Dosage: 1 MG, 2X/DAY
     Route: 048
     Dates: start: 20100904, end: 20101001
  4. CHANTIX [Suspect]
     Dosage: UNK
     Dates: start: 20100901, end: 20100101
  5. CHANTIX [Suspect]
     Dosage: 1 MG, 2X/DAY
     Dates: start: 20101117
  6. DEPAKOTE [Concomitant]
     Indication: SCHIZOPHRENIA
     Dosage: 500 MG, DAILY
     Route: 048
  7. DEPAKOTE [Concomitant]
     Indication: MENTAL DISORDER
     Dosage: 50 MG, UNK
  8. ZYPREXA [Concomitant]
     Indication: MENTAL DISORDER
     Dosage: 15 MG, DAILY
     Route: 048
  9. ZYPREXA [Concomitant]
     Dosage: 50 MG, UNK
  10. CLONAZEPAM [Concomitant]
     Indication: SCHIZOPHRENIA
     Dosage: 1 MG, 2X/DAY
     Route: 048
  11. CLONAZEPAM [Concomitant]
     Indication: MENTAL DISORDER
  12. SIMVASTATIN [Concomitant]
     Indication: BLOOD CHOLESTEROL ABNORMAL
     Dosage: UNK
     Route: 048
  13. SIMVASTATIN [Concomitant]
     Indication: BLOOD CHOLESTEROL INCREASED

REACTIONS (16)
  - ABNORMAL DREAMS [None]
  - ANXIETY [None]
  - CONSTIPATION [None]
  - DIZZINESS [None]
  - FEELING ABNORMAL [None]
  - FEELING DRUNK [None]
  - FEELING GUILTY [None]
  - FRUSTRATION [None]
  - MEMORY IMPAIRMENT [None]
  - NERVOUSNESS [None]
  - NICOTINE DEPENDENCE [None]
  - PSYCHIATRIC SYMPTOM [None]
  - SOMNOLENCE [None]
  - STRESS [None]
  - TOBACCO USER [None]
  - WITHDRAWAL SYNDROME [None]
